FAERS Safety Report 20511109 (Version 1)
Quarter: 2022Q1

REPORT INFORMATION
  Report Type: Spontaneous
  Country: US (occurrence: US)
  Receive Date: 20220224
  Receipt Date: 20220224
  Transmission Date: 20220423
  Serious: No
  Sender: FDA-Public Use
  Company Number: US-GLENMARK PHARMACEUTICALS-2021GMK067042

PATIENT

DRUGS (8)
  1. MUPIROCIN [Suspect]
     Active Substance: MUPIROCIN
     Indication: Preoperative care
     Dosage: UNK, BID
     Route: 061
  2. MUPIROCIN [Suspect]
     Active Substance: MUPIROCIN
     Indication: Preoperative care
     Dosage: UNK, BID
     Route: 061
  3. CHLORHEXIDINE GLUCONATE [Concomitant]
     Active Substance: CHLORHEXIDINE GLUCONATE
     Indication: Product used for unknown indication
     Dosage: UNK, BID
     Route: 061
     Dates: start: 20210727
  4. CALCIUM CARBONATE\CHOLECALCIFEROL [Concomitant]
     Active Substance: CALCIUM CARBONATE\CHOLECALCIFEROL
     Indication: Vitamin supplementation
     Dosage: UNK UNK, OD
     Route: 048
  5. TERAZOSIN HYDROCHLORIDE [Concomitant]
     Active Substance: TERAZOSIN HYDROCHLORIDE
     Indication: Cardiac disorder
     Dosage: UNK, OD
     Route: 048
  6. WARFARIN [Concomitant]
     Active Substance: WARFARIN
     Indication: Thrombosis
     Dosage: UNK, OD
     Route: 048
  7. FUROSEMIDE [Concomitant]
     Active Substance: FUROSEMIDE
     Indication: Diuretic therapy
     Dosage: 40 MILLIGRAM, OD
     Route: 048
  8. PROPRANOLOL [Concomitant]
     Active Substance: PROPRANOLOL HYDROCHLORIDE
     Indication: Tremor
     Dosage: 10 MILLIGRAM, BID
     Route: 048

REACTIONS (2)
  - Product use issue [Unknown]
  - Product use in unapproved indication [Unknown]
